FAERS Safety Report 9340153 (Version 1)
Quarter: 2013Q2

REPORT INFORMATION
  Report Type: Spontaneous
  Country: US (occurrence: None)
  Receive Date: 20130610
  Receipt Date: 20130610
  Transmission Date: 20140414
  Serious: No
  Sender: FDA-Public Use
  Company Number: None

PATIENT
  Age: 62 Year
  Sex: Female

DRUGS (1)
  1. NUTROPIN AQ NUSPIN [Suspect]
     Indication: DWARFISM
     Dates: start: 20121001, end: 20130506

REACTIONS (5)
  - Carpal tunnel syndrome [None]
  - Condition aggravated [None]
  - Local swelling [None]
  - Pain in extremity [None]
  - Arthralgia [None]
